FAERS Safety Report 4325801-X (Version None)
Quarter: 2004Q1

REPORT INFORMATION
  Report Type: 
  Country: None (occurrence: None)
  Receive Date: 20040323
  Receipt Date: 20040310
  Transmission Date: 20041129
  Serious: Yes (Hospitalization)
  Sender: FDA-Public Use
  Company Number: 200400256

PATIENT
  Age: 12 Year
  Sex: Male
  Weight: 24.9478 kg

DRUGS (4)
  1. BOTOX [Suspect]
     Indication: MUSCLE SPASTICITY
     Dosage: 150 UNITS PRN IM
     Route: 030
     Dates: start: 20030204
  2. DEPAKOTE [Concomitant]
  3. KEPPRA [Concomitant]
  4. DIAZEPAM [Concomitant]

REACTIONS (7)
  - DRUG EFFECT DECREASED [None]
  - DRUG RESISTANCE [None]
  - GRAND MAL CONVULSION [None]
  - HORMONE LEVEL ABNORMAL [None]
  - MUSCLE TIGHTNESS [None]
  - PYREXIA [None]
  - VIRAL INFECTION [None]
